FAERS Safety Report 9695139 (Version 3)
Quarter: 2014Q2

REPORT INFORMATION
  Report Type: Spontaneous
  Country: JP (occurrence: JP)
  Receive Date: 20131119
  Receipt Date: 20140408
  Transmission Date: 20141212
  Serious: Yes (Life-Threatening, Hospitalization)
  Sender: FDA-Public Use
  Company Number: JP-JNJFOC-20131108352

PATIENT
  Age: 70 Year
  Sex: Female
  Weight: 67 kg

DRUGS (11)
  1. TRAMCET [Suspect]
     Indication: SPONDYLOLISTHESIS
     Route: 048
     Dates: start: 20131001, end: 20131105
  2. TRAMCET [Suspect]
     Indication: INTERVERTEBRAL DISC PROTRUSION
     Route: 048
     Dates: start: 20131001, end: 20131105
  3. URDENACIN [Concomitant]
     Indication: CHRONIC HEPATITIS
     Dosage: 1 PER 1 DAY
     Route: 048
  4. NEOPHAGEN C [Concomitant]
     Indication: CHRONIC HEPATITIS
     Dosage: THRICE DAILY
     Route: 048
  5. CONIEL [Concomitant]
     Indication: HYPERTENSION
     Dosage: 1 PER 1 DAY
     Route: 048
  6. GLACTIV [Concomitant]
     Indication: DIABETES MELLITUS
     Dosage: 1 PER 1 DAY
     Route: 048
  7. GLIMICRON [Concomitant]
     Indication: DIABETES MELLITUS
     Dosage: 80 MG IN THE MORNING AND 40 MG BEFORE EVENING MEAL
     Route: 048
  8. VOGLIBOSE [Concomitant]
     Indication: DIABETES MELLITUS
     Dosage: 1 PER 1 DAY
     Route: 048
  9. METGLUCO [Concomitant]
     Indication: DIABETES MELLITUS
     Dosage: THRICE DAILY
     Route: 048
  10. SPIRONOLACTONE [Concomitant]
     Indication: HYPERTENSION
     Dosage: 2 PER 1 DAY
     Route: 048
  11. LASIX [Concomitant]
     Indication: HYPERTENSION
     Dosage: 1 PER 1 DAY
     Route: 048

REACTIONS (12)
  - Chronic hepatitis [Unknown]
  - Hepatocellular carcinoma [Not Recovered/Not Resolved]
  - Hepatic cirrhosis [Not Recovered/Not Resolved]
  - Hyperammonaemia [Not Recovered/Not Resolved]
  - Hypoalbuminaemia [Unknown]
  - Ascites [Not Recovered/Not Resolved]
  - Varices oesophageal [Not Recovered/Not Resolved]
  - Dyspnoea [Not Recovered/Not Resolved]
  - Diarrhoea [Unknown]
  - Abdominal distension [Not Recovered/Not Resolved]
  - Decreased appetite [Recovered/Resolved]
  - Oedema [Not Recovered/Not Resolved]
